FAERS Safety Report 17708382 (Version 2)
Quarter: 2020Q2

REPORT INFORMATION
  Report Type: Report from Study
  Country: CN (occurrence: CN)
  Receive Date: 20200426
  Receipt Date: 20200504
  Transmission Date: 20200714
  Serious: Yes (Death, Other)
  Sender: FDA-Public Use
  Company Number: NVSC2020CN043865

PATIENT
  Age: 56 Year
  Sex: Male
  Weight: 79 kg

DRUGS (2)
  1. TASIGNA [Suspect]
     Active Substance: NILOTINIB
     Indication: CHRONIC MYELOID LEUKAEMIA
     Dosage: 300 MG, BID (ONCE IN MORNING AND ONCE IN AFTERNOON) (TWO HOURS AFTER MEAL WAS TAKEN)
     Route: 048
     Dates: start: 20191231, end: 20200203
  2. NOVOLIN NOS [Concomitant]
     Active Substance: INSULIN HUMAN
     Indication: PRODUCT USED FOR UNKNOWN INDICATION
     Dosage: 35 U, BID (MORNING AND EVENING)
     Route: 058

REACTIONS (2)
  - Cerebral haemorrhage [Fatal]
  - Platelet count decreased [Unknown]

NARRATIVE: CASE EVENT DATE: 20200205
